FAERS Safety Report 7304117-3 (Version None)
Quarter: 2011Q1

REPORT INFORMATION
  Report Type: 
  Country: None (occurrence: None)
  Receive Date: 20110221
  Receipt Date: 20110214
  Transmission Date: 20110831
  Serious: Yes (Death)
  Sender: FDA-Public Use
  Company Number: US-BAXTER-2011BH003535

PATIENT
  Age: 65 Year
  Sex: Female

DRUGS (1)
  1. DIANEAL [Suspect]
     Indication: PERITONEAL DIALYSIS
     Route: 033
     Dates: end: 20110127

REACTIONS (4)
  - CARDIAC FAILURE [None]
  - INFECTION [None]
  - RENAL FAILURE CHRONIC [None]
  - TYPE 1 DIABETES MELLITUS [None]
